FAERS Safety Report 13423128 (Version 1)
Quarter: 2017Q2

REPORT INFORMATION
  Report Type: Spontaneous
  Country: PL (occurrence: PL)
  Receive Date: 20170410
  Receipt Date: 20170410
  Transmission Date: 20170830
  Serious: Yes (Other)
  Sender: FDA-Public Use
  Company Number: PL-REGENERON PHARMACEUTICALS, INC.-2017-13608

PATIENT

DRUGS (7)
  1. CORNEREGEL [Concomitant]
     Active Substance: DEXPANTHENOL
     Indication: PRODUCT USED FOR UNKNOWN INDICATION
     Dosage: 3 X DAILY - GEL TO THE EYE, TID
     Dates: start: 20170116, end: 20170316
  2. MULTIVITAMIN AND MINERAL SUPPLEMENT [Concomitant]
     Active Substance: MINERALS\VITAMINS
     Indication: PRODUCT USED FOR UNKNOWN INDICATION
  3. DEXAMETAZON [Concomitant]
     Active Substance: DEXAMETHASONE
     Indication: PRODUCT USED FOR UNKNOWN INDICATION
     Dosage: 2 X EYE DROPS
     Dates: start: 20170117, end: 20170223
  4. EYLEA [Suspect]
     Active Substance: AFLIBERCEPT
     Indication: NEOVASCULAR AGE-RELATED MACULAR DEGENERATION
     Dosage: 2 MG, FOURTH INJECTION (LEFT EYE) WAS RECEIVED ON 13-JAN-2017
     Route: 031
     Dates: start: 20160829, end: 20170113
  5. DEXAMETHASONE. [Concomitant]
     Active Substance: DEXAMETHASONE
     Indication: PRODUCT USED FOR UNKNOWN INDICATION
     Dosage: 2 X DAILY EYE DROP TO THE EYE , BID
     Dates: start: 20170308, end: 20170316
  6. EYLEA [Suspect]
     Active Substance: AFLIBERCEPT
     Indication: DETACHMENT OF RETINAL PIGMENT EPITHELIUM
  7. DORZOLAMIDE HYDROCHLORIDE. [Concomitant]
     Active Substance: DORZOLAMIDE HYDROCHLORIDE
     Indication: PRODUCT USED FOR UNKNOWN INDICATION
     Dosage: 2 X EYE DROP TO THE EYE
     Dates: start: 20170221, end: 20170316

REACTIONS (1)
  - Keratitis [Recovering/Resolving]

NARRATIVE: CASE EVENT DATE: 20170116
